FAERS Safety Report 18413845 (Version 1)
Quarter: 2020Q4

REPORT INFORMATION
  Report Type: Spontaneous
  Country: IT (occurrence: IT)
  Receive Date: 20201022
  Receipt Date: 20201022
  Transmission Date: 20210114
  Serious: Yes (Life-Threatening)
  Sender: FDA-Public Use
  Company Number: IT-BIOGEN-2020BI00936616

PATIENT
  Age: 59 Year
  Sex: Female

DRUGS (1)
  1. FAMPYRA [Suspect]
     Active Substance: DALFAMPRIDINE
     Indication: SYRINGOMYELIA
     Route: 048
     Dates: start: 20200927, end: 20200927

REACTIONS (4)
  - Medication error [Recovered/Resolved]
  - Agitation [Recovered/Resolved]
  - Paraesthesia [Recovered/Resolved]
  - Seizure [Recovered/Resolved]

NARRATIVE: CASE EVENT DATE: 20200927
